FAERS Safety Report 6771959-2 (Version None)
Quarter: 2010Q2

REPORT INFORMATION
  Report Type: 
  Country: None (occurrence: None)
  Receive Date: 20100616
  Receipt Date: 20100405
  Transmission Date: 20101027
  Serious: No
  Sender: FDA-Public Use
  Company Number: US-ASTRAZENECA-2009UW09357

PATIENT
  Age: 54 Year
  Sex: Female
  Weight: 47.2 kg

DRUGS (4)
  1. RHINOCORT [Suspect]
     Indication: MULTIPLE ALLERGIES
     Route: 045
     Dates: start: 20090306
  2. RHINOCORT [Suspect]
     Route: 045
  3. ANTIHISTAMINES [Concomitant]
  4. ZYRTEC [Concomitant]
     Indication: MULTIPLE ALLERGIES

REACTIONS (2)
  - HEADACHE [None]
  - NASAL DRYNESS [None]
